FAERS Safety Report 10541303 (Version 3)
Quarter: 2014Q4

REPORT INFORMATION
  Report Type: Spontaneous
  Country: JP (occurrence: JP)
  Receive Date: 20141024
  Receipt Date: 20141121
  Transmission Date: 20150529
  Serious: Yes (Other)
  Sender: FDA-Public Use
  Company Number: JP-009507513-1410JPN012477

PATIENT
  Age: 73 Year
  Sex: Male

DRUGS (2)
  1. MENESIT TABLETS - 100 [Suspect]
     Active Substance: CARBIDOPA\LEVODOPA
     Dosage: 1 TABLET 3 TIMES AFTER EACH MEAL
     Route: 048
     Dates: start: 20141020, end: 201410
  2. MIRAPEX [Concomitant]
     Active Substance: PRAMIPEXOLE DIHYDROCHLORIDE
     Dosage: 3 MG, QD (1.5 MG, 2 TABLETS ONCE A DAY), AFTER BREAKFAST
     Route: 048
     Dates: start: 20141020, end: 201410

REACTIONS (3)
  - Gastrointestinal perforation [Unknown]
  - Dysphagia [Unknown]
  - Incorrect dose administered [Unknown]

NARRATIVE: CASE EVENT DATE: 20141020
